FAERS Safety Report 4400682-4 (Version None)
Quarter: 2004Q3

REPORT INFORMATION
  Report Type: 
  Country: None (occurrence: None)
  Receive Date: 20040714
  Receipt Date: 20040705
  Transmission Date: 20050211
  Serious: Yes (Hospitalization)
  Sender: FDA-Public Use
  Company Number: 8330

PATIENT
  Age: 64 Year
  Sex: Female

DRUGS (6)
  1. ERYTHROMYCIN [Suspect]
     Indication: UPPER RESPIRATORY TRACT INFECTION
     Dosage: 500 MG, PO
     Route: 048
     Dates: end: 20031014
  2. FOSINOPRIL SODIUM [Suspect]
     Indication: ESSENTIAL HYPERTENSION
     Dosage: 1 TABLET (S) PO
     Route: 048
     Dates: end: 20031014
  3. ATENOLOL [Concomitant]
  4. FLUTICASONE PROPIONATE [Concomitant]
  5. SALBUTAMOL SULFATE [Concomitant]
  6. CROMOLYN SODIUM [Concomitant]

REACTIONS (5)
  - ANGIONEUROTIC OEDEMA [None]
  - HYPERSENSITIVITY [None]
  - PRURITUS [None]
  - RASH [None]
  - SWOLLEN TONGUE [None]
